FAERS Safety Report 8353053-2 (Version None)
Quarter: 2012Q2

REPORT INFORMATION
  Report Type: 
  Country: None (occurrence: None)
  Receive Date: 20120511
  Receipt Date: 20120508
  Transmission Date: 20120825
  Serious: Yes (Other)
  Sender: FDA-Public Use
  Company Number: US-PFIZER INC-2012112800

PATIENT
  Sex: Male
  Weight: 127 kg

DRUGS (10)
  1. PRISTIQ [Suspect]
     Indication: MAJOR DEPRESSION
     Dosage: 50 MG, 1X/DAY
     Route: 048
     Dates: start: 20080101, end: 20110503
  2. LITHIUM [Concomitant]
     Dosage: 1500 MG, 1X/DAY
  3. EFFEXOR [Suspect]
     Dosage: UNK
  4. DEXTROAMPHETAMINE [Concomitant]
     Dosage: 40 MG, 1X/DAY
  5. CLOMIPRAMINE [Concomitant]
     Dosage: 200 MG, 1X/DAY
  6. BUSPIRONE [Concomitant]
     Dosage: 60 MG, 1X/DAY
  7. LAMICTAL [Concomitant]
     Dosage: UNK
  8. PROZAC [Concomitant]
     Dosage: 60 MG, UNK
  9. DIAZEPAM [Concomitant]
     Dosage: 30 MG, 1X/DAY
  10. RISPERIDONE [Concomitant]
     Dosage: 6 MG, UNK

REACTIONS (10)
  - LOSS OF CONSCIOUSNESS [None]
  - DIZZINESS [None]
  - HEAD DISCOMFORT [None]
  - NAUSEA [None]
  - MAJOR DEPRESSION [None]
  - HEADACHE [None]
  - ANGER [None]
  - CONVULSION [None]
  - FALL [None]
  - IRRITABILITY [None]
